FAERS Safety Report 15810929 (Version 1)
Quarter: 2019Q1

REPORT INFORMATION
  Report Type: Spontaneous
  Country: US (occurrence: US)
  Receive Date: 20190111
  Receipt Date: 20190111
  Transmission Date: 20190417
  Serious: Yes (Other)
  Sender: FDA-Public Use
  Company Number: US-TEVA-2019-US-995919

PATIENT
  Age: 81 Year
  Sex: Female

DRUGS (1)
  1. ATENOLOL. [Suspect]
     Active Substance: ATENOLOL
     Route: 065

REACTIONS (6)
  - Decreased appetite [Unknown]
  - Dementia [Unknown]
  - Dysarthria [Unknown]
  - Cerebrovascular accident [Unknown]
  - Dizziness [Unknown]
  - Fatigue [Unknown]
